FAERS Safety Report 19405111 (Version 1)
Quarter: 2021Q2

REPORT INFORMATION
  Report Type: Spontaneous
  Country: US (occurrence: US)
  Receive Date: 20210611
  Receipt Date: 20210611
  Transmission Date: 20210717
  Serious: No
  Sender: FDA-Public Use
  Company Number: None

PATIENT
  Age: 80 Year
  Sex: Male
  Weight: 70 kg

DRUGS (2)
  1. TIMOLOL (TIMOLOL MALEATE 0.5% SOLN, OPH) [Suspect]
     Active Substance: TIMOLOL MALEATE
     Indication: GLAUCOMA
     Dosage: ?          OTHER ROUTE:EYE?
     Dates: start: 20210309, end: 20210508
  2. METOPROLOL (METOPROLOL SUCCINATE 100MG TAB,SA) [Suspect]
     Active Substance: METOPROLOL SUCCINATE
     Indication: CARDIAC FAILURE CONGESTIVE
     Route: 048
     Dates: start: 20200526, end: 20210508

REACTIONS (2)
  - Syncope [None]
  - Bradycardia [None]

NARRATIVE: CASE EVENT DATE: 20210508
